FAERS Safety Report 6075069-1 (Version None)
Quarter: 2009Q1

REPORT INFORMATION
  Report Type: 
  Country: None (occurrence: None)
  Receive Date: 20090212
  Receipt Date: 20090210
  Transmission Date: 20090719
  Serious: Yes (Death)
  Sender: FDA-Public Use
  Company Number: ES-JNJFOC-20090105772

PATIENT
  Sex: Male
  Weight: 114.5 kg

DRUGS (8)
  1. RISPERDAL CONSTA [Suspect]
     Indication: SCHIZOPHRENIA
     Route: 030
  2. ANTIPSYCHOTICS [Concomitant]
     Route: 048
  3. UNKNOWN DRUG [Concomitant]
     Indication: HYPERURICAEMIA
     Route: 048
  4. METFORMINA [Concomitant]
     Indication: TYPE 2 DIABETES MELLITUS
     Route: 048
  5. UNKNOWN DRUG [Concomitant]
     Indication: HYPERTENSION
     Route: 048
  6. COPTOS [Concomitant]
     Indication: GLAUCOMA
     Route: 047
  7. SEROQUEL [Concomitant]
     Indication: SCHIZOPHRENIA
     Route: 065
  8. XALATAN [Concomitant]
     Indication: GLAUCOMA
     Route: 047

REACTIONS (1)
  - DEATH [None]
